FAERS Safety Report 16682004 (Version 1)
Quarter: 2019Q3

REPORT INFORMATION
  Report Type: Spontaneous
  Country: US (occurrence: US)
  Receive Date: 20190808
  Receipt Date: 20190808
  Transmission Date: 20191004
  Serious: No
  Sender: FDA-Public Use
  Company Number: US-BAYER-2019-147431

PATIENT
  Age: 74 Year
  Sex: Female
  Weight: 86 kg

DRUGS (2)
  1. MIRALAX [Suspect]
     Active Substance: POLYETHYLENE GLYCOL 3350
     Indication: COLONOSCOPY
     Dosage: 7 DOSES IN 32OZ OF GATORADE(238G IN 64 OUNCES OF GATORADE(238G IN 64 OUNCES OF GATORADE
     Route: 048
  2. BOVINE FAT [Concomitant]
     Dosage: UNK

REACTIONS (2)
  - Off label use of device [Unknown]
  - Device use issue [Unknown]

NARRATIVE: CASE EVENT DATE: 201907
